FAERS Safety Report 6945472-3 (Version None)
Quarter: 2010Q3

REPORT INFORMATION
  Report Type: 
  Country: None (occurrence: None)
  Receive Date: 20100827
  Receipt Date: 20100818
  Transmission Date: 20110219
  Serious: Yes (Other)
  Sender: FDA-Public Use
  Company Number: GXKR2010FR09226

PATIENT
  Age: 73 Year
  Sex: Male

DRUGS (2)
  1. GEMCITABINE (NGX) [Suspect]
     Indication: TRANSITIONAL CELL CARCINOMA
     Dosage: 1850 MG, UNK
     Route: 065
  2. CARBOPLATIN [Suspect]
     Indication: TRANSITIONAL CELL CARCINOMA
     Route: 065

REACTIONS (6)
  - ANAEMIA [None]
  - ARTERIAL OCCLUSIVE DISEASE [None]
  - NECROSIS [None]
  - PAIN [None]
  - PERIPHERAL ISCHAEMIA [None]
  - RAYNAUD'S PHENOMENON [None]
